FAERS Safety Report 7264820-0 (Version None)
Quarter: 2011Q1

REPORT INFORMATION
  Report Type: 
  Country: None (occurrence: None)
  Receive Date: 20110131
  Receipt Date: 20110121
  Transmission Date: 20110831
  Serious: Yes (Other)
  Sender: FDA-Public Use
  Company Number: CA-BRISTOL-MYERS SQUIBB COMPANY-15505878

PATIENT
  Sex: Male

DRUGS (5)
  1. SENOKOT [Concomitant]
  2. NIFEDIPINE [Concomitant]
  3. TAXOL [Suspect]
  4. DOCUSATE [Concomitant]
  5. HERCEPTIN [Concomitant]

REACTIONS (1)
  - ELECTROCARDIOGRAM QT PROLONGED [None]
